FAERS Safety Report 16965283 (Version 3)
Quarter: 2020Q3

REPORT INFORMATION
  Report Type: Spontaneous
  Country: US (occurrence: US)
  Receive Date: 20191028
  Receipt Date: 20200820
  Transmission Date: 20201102
  Serious: Yes (Other)
  Sender: FDA-Public Use
  Company Number: US-GILEAD-2019-0434674

PATIENT
  Sex: Female

DRUGS (5)
  1. ROBAXIN [Concomitant]
     Active Substance: METHOCARBAMOL
  2. OXYCODONE [Concomitant]
     Active Substance: OXYCODONE
  3. TRUVADA [Suspect]
     Active Substance: EMTRICITABINE\TENOFOVIR DISOPROXIL FUMARATE
     Indication: HIV INFECTION
     Dosage: UNK
     Route: 048
     Dates: start: 201101, end: 201904
  4. DESCOVY [Concomitant]
     Active Substance: EMTRICITABINE\TENOFOVIR ALAFENAMIDE FUMARATE
  5. ALBUTEROL SULFATE. [Concomitant]
     Active Substance: ALBUTEROL SULFATE

REACTIONS (12)
  - Gait inability [Unknown]
  - Pain [Unknown]
  - Bone loss [Not Recovered/Not Resolved]
  - Depression [Not Recovered/Not Resolved]
  - Osteoporosis [Not Recovered/Not Resolved]
  - Economic problem [Unknown]
  - Bone density decreased [Not Recovered/Not Resolved]
  - Anxiety [Unknown]
  - Fracture [Not Recovered/Not Resolved]
  - Tooth loss [Not Recovered/Not Resolved]
  - Anhedonia [Unknown]
  - Emotional distress [Unknown]

NARRATIVE: CASE EVENT DATE: 2014
